FAERS Safety Report 20247387 (Version 1)
Quarter: 2021Q4

REPORT INFORMATION
  Report Type: Spontaneous
  Country: BG (occurrence: BG)
  Receive Date: 20211229
  Receipt Date: 20211229
  Transmission Date: 20220303
  Serious: Yes (Hospitalization)
  Sender: FDA-Public Use
  Company Number: BG-ABBVIE-19S-022-2731734-00

PATIENT
  Age: 1 Month
  Sex: Male

DRUGS (2)
  1. SYNAGIS [Suspect]
     Active Substance: PALIVIZUMAB
     Indication: Antiviral prophylaxis
     Dosage: 15.0MG/KG ONCE/SINGLE ADMINISTRATION
     Route: 030
     Dates: start: 20190226, end: 20190226
  2. SYNAGIS [Suspect]
     Active Substance: PALIVIZUMAB
     Dosage: 15.0MG/KG ONCE/SINGLE ADMINISTRATION
     Route: 030
     Dates: start: 20190326, end: 20190326

REACTIONS (2)
  - Respiratory syncytial virus infection [Recovered/Resolved]
  - Off label use [Unknown]

NARRATIVE: CASE EVENT DATE: 20190226
